FAERS Safety Report 6724083-9 (Version None)
Quarter: 2010Q2

REPORT INFORMATION
  Report Type: 
  Country: None (occurrence: None)
  Receive Date: 20100513
  Receipt Date: 20100503
  Transmission Date: 20101027
  Serious: Yes (Death, Hospitalization)
  Sender: FDA-Public Use
  Company Number: US-BAXTER-2010BH012377

PATIENT
  Age: 96 Year
  Sex: Female
  Weight: 36 kg

DRUGS (2)
  1. DIANEAL [Suspect]
     Indication: PERITONEAL DIALYSIS
     Route: 033
     Dates: start: 20050101, end: 20100329
  2. DIANEAL [Suspect]
     Indication: RENAL FAILURE CHRONIC
     Route: 033
     Dates: start: 20050101, end: 20100329

REACTIONS (5)
  - CLOSTRIDIAL INFECTION [None]
  - DECUBITUS ULCER [None]
  - DIARRHOEA [None]
  - HYPOTENSION [None]
  - SEPSIS [None]
